FAERS Safety Report 23867991 (Version 1)
Quarter: 2024Q2

REPORT INFORMATION
  Report Type: Spontaneous
  Country: JP (occurrence: JP)
  Receive Date: 20240517
  Receipt Date: 20240517
  Transmission Date: 20240716
  Serious: Yes (Other)
  Sender: FDA-Public Use
  Company Number: JP-UCBJ-CD202404212UCBPHAPROD

PATIENT

DRUGS (1)
  1. CIMZIA [Suspect]
     Active Substance: CERTOLIZUMAB PEGOL
     Indication: Rheumatoid arthritis
     Dosage: UNK
     Route: 058

REACTIONS (4)
  - Oesophageal carcinoma [Unknown]
  - Anaphylactic reaction [Unknown]
  - Lung neoplasm malignant [Unknown]
  - Renal haemorrhage [Unknown]
